FAERS Safety Report 20702189 (Version 1)
Quarter: 2022Q2

REPORT INFORMATION
  Report Type: Spontaneous
  Country: US (occurrence: None)
  Receive Date: 20220411
  Receipt Date: 20220411
  Transmission Date: 20220721
  Serious: Yes (Other)
  Sender: FDA-Public Use
  Company Number: None

PATIENT
  Age: 54 Year
  Sex: Male
  Weight: 74.25 kg

DRUGS (5)
  1. FIRDAPSE [Suspect]
     Active Substance: AMIFAMPRIDINE PHOSPHATE
     Indication: Myasthenic syndrome
     Dosage: OTHER QUANTITY : 1 TABLET(S);?FREQUENCY : AS NEEDED;?
     Route: 048
     Dates: start: 20220408
  2. MESTINON [Concomitant]
     Active Substance: PYRIDOSTIGMINE BROMIDE
  3. thyroid pill [Concomitant]
  4. vitamin d3 3000 iu daily [Concomitant]
  5. multivitamon [Concomitant]

REACTIONS (9)
  - Drug effect less than expected [None]
  - Product solubility abnormal [None]
  - Product use complaint [None]
  - Product measured potency issue [None]
  - Speech disorder [None]
  - Gait disturbance [None]
  - Dyspnoea [None]
  - Dysphagia [None]
  - Condition aggravated [None]

NARRATIVE: CASE EVENT DATE: 20220411
